FAERS Safety Report 4891911-1 (Version None)
Quarter: 2006Q1

REPORT INFORMATION
  Report Type: 
  Country: None (occurrence: None)
  Receive Date: 20060124
  Receipt Date: 20060109
  Transmission Date: 20060701
  Serious: Yes (Other)
  Sender: FDA-Public Use
  Company Number: L05-ESP-05762-01

PATIENT
  Age: 74 Year
  Sex: Male

DRUGS (6)
  1. MEMANTINE HCL [Suspect]
     Indication: COGNITIVE DISORDER
     Dosage: 5  MG
  2. MEMANTINE HCL [Suspect]
     Indication: DEMENTIA ALZHEIMER'S TYPE
     Dosage: 5  MG
  3. RISPERIDONE [Concomitant]
  4. DONEPEZIL HCL [Concomitant]
  5. RIVASTIGMINE [Concomitant]
  6. ENALAPRIL [Concomitant]

REACTIONS (5)
  - AGITATION [None]
  - CONDITION AGGRAVATED [None]
  - DEMENTIA [None]
  - HALLUCINATION, VISUAL [None]
  - PARKINSONISM [None]
